FAERS Safety Report 8222899-3 (Version None)
Quarter: 2012Q1

REPORT INFORMATION
  Report Type: 
  Country: None (occurrence: None)
  Receive Date: 20120320
  Receipt Date: 20120224
  Transmission Date: 20120608
  Serious: Yes (Other)
  Sender: FDA-Public Use
  Company Number: CHPA2012BR003625

PATIENT
  Sex: Female
  Weight: 93 kg

DRUGS (1)
  1. CIBALENAA [Suspect]
     Indication: MIGRAINE
     Dosage: 1 DF, ONCE/SINGLE
     Route: 048
     Dates: start: 20120224, end: 20120224

REACTIONS (6)
  - EXPOSURE DURING BREAST FEEDING [None]
  - HYPOAESTHESIA [None]
  - MUSCULAR WEAKNESS [None]
  - UNDERDOSE [None]
  - NAUSEA [None]
  - MEMORY IMPAIRMENT [None]
